FAERS Safety Report 7189842-X (Version None)
Quarter: 2010Q4

REPORT INFORMATION
  Report Type: 
  Country: None (occurrence: None)
  Receive Date: 20101223
  Receipt Date: 20101217
  Transmission Date: 20110411
  Serious: Yes (Hospitalization, Other)
  Sender: FDA-Public Use
  Company Number: US-SHIRE-ALL1-2010-06533

PATIENT
  Age: 72 Year
  Sex: Male
  Weight: 83.9 kg

DRUGS (1)
  1. FOSRENOL [Suspect]
     Indication: HYPERPHOSPHATAEMIA
     Dosage: 1000 MG, OTHER (WITH MEALS)
     Route: 048
     Dates: start: 20090101

REACTIONS (6)
  - CARDIOVASCULAR DISORDER [None]
  - DYSPHONIA [None]
  - ENDOTRACHEAL INTUBATION COMPLICATION [None]
  - FALL [None]
  - NAUSEA [None]
  - PELVIC FRACTURE [None]
